FAERS Safety Report 4283885-1 (Version None)
Quarter: 2004Q1

REPORT INFORMATION
  Report Type: 
  Country: None (occurrence: None)
  Receive Date: 20040115
  Receipt Date: 20030812
  Transmission Date: 20041129
  Serious: Yes (Other)
  Sender: FDA-Public Use
  Company Number: US-JNJFOC-20030602232

PATIENT
  Age: 46 Year
  Sex: Female
  Weight: 72.5755 kg

DRUGS (6)
  1. DOXIL [Suspect]
     Indication: BREAST CANCER
     Dosage: 55 MG, 1 IN 21 DAY, INTRAVENOUS
     Route: 042
     Dates: start: 20030516, end: 20030606
  2. TAXOTERE [Concomitant]
  3. ZOLOFT [Concomitant]
  4. VITAMIN B6 [Concomitant]
  5. DECADRON [Concomitant]
  6. FOLIC ACID [Concomitant]

REACTIONS (1)
  - PALMAR-PLANTAR ERYTHRODYSAESTHESIA SYNDROME [None]
